FAERS Safety Report 13713359 (Version 3)
Quarter: 2017Q3

REPORT INFORMATION
  Report Type: Spontaneous
  Country: SE (occurrence: SE)
  Receive Date: 20170704
  Receipt Date: 20170818
  Transmission Date: 20171127
  Serious: Yes (Disabling, Other)
  Sender: FDA-Public Use
  Company Number: SE-ABBVIE-17K-150-2025757-00

PATIENT
  Sex: Female

DRUGS (4)
  1. BEHEPAN [Concomitant]
     Active Substance: HYDROXOCOBALAMIN
     Indication: PRODUCT USED FOR UNKNOWN INDICATION
  2. FOLACIN [Concomitant]
     Active Substance: FOLIC ACID
     Indication: PRODUCT USED FOR UNKNOWN INDICATION
  3. MYCOSTATIN [Concomitant]
     Active Substance: NYSTATIN
     Indication: PRODUCT USED FOR UNKNOWN INDICATION
  4. HUMIRA [Suspect]
     Active Substance: ADALIMUMAB
     Indication: CROHN^S DISEASE
     Route: 058
     Dates: start: 20131128

REACTIONS (6)
  - Laryngitis [Not Recovered/Not Resolved]
  - Nasal congestion [Unknown]
  - Impaired quality of life [Unknown]
  - Dysphonia [Not Recovered/Not Resolved]
  - Laryngeal dysplasia [Unknown]
  - Eosinophilic oesophagitis [Unknown]
